FAERS Safety Report 17573041 (Version 2)
Quarter: 2020Q2

REPORT INFORMATION
  Report Type: Spontaneous
  Country: IT (occurrence: IT)
  Receive Date: 20200323
  Receipt Date: 20200617
  Transmission Date: 20200713
  Serious: Yes (Other)
  Sender: FDA-Public Use
  Company Number: IT-MYLANLABS-2020M1029302

PATIENT
  Age: 29 Year
  Sex: Female

DRUGS (2)
  1. IBUPROFEN. [Suspect]
     Active Substance: IBUPROFEN
     Indication: TOOTHACHE
     Dosage: 600 MG, BID
     Route: 065
  2. AMOXICILLIN+CLAVULANIC ACID        /02043401/ [Concomitant]
     Indication: TOOTHACHE
     Dosage: 1 G, BID

REACTIONS (14)
  - Skin test positive [Recovered/Resolved]
  - Nausea [Recovered/Resolved]
  - Hyperpyrexia [Recovered/Resolved]
  - Red blood cell sedimentation rate increased [Recovered/Resolved]
  - Meningitis aseptic [Recovering/Resolving]
  - Photophobia [Recovered/Resolved]
  - Leukocytosis [Recovered/Resolved]
  - Musculoskeletal stiffness [Recovered/Resolved]
  - C-reactive protein increased [Recovered/Resolved]
  - Headache [Recovered/Resolved]
  - Pleocytosis [Recovered/Resolved]
  - CSF glucose increased [Recovered/Resolved]
  - Type IV hypersensitivity reaction [Recovered/Resolved]
  - CSF protein increased [Recovered/Resolved]
